FAERS Safety Report 14025775 (Version 2)
Quarter: 2017Q4

REPORT INFORMATION
  Report Type: Spontaneous
  Country: ZA (occurrence: ZA)
  Receive Date: 20170929
  Receipt Date: 20171031
  Transmission Date: 20180321
  Serious: Yes (Other)
  Sender: FDA-Public Use
  Company Number: ZA-GLAXOSMITHKLINE-ZA2017GSK150499

PATIENT
  Age: 60 Year
  Sex: Female

DRUGS (1)
  1. GRANDPA [Suspect]
     Active Substance: ACETAMINOPHEN\ASPIRIN\CAFFEINE
     Indication: HEADACHE
     Dosage: 4 TO 6 PER DAY (SOMETIMES 8 ON A VERY STRESSFUL DAY)
     Route: 048

REACTIONS (3)
  - Gastric disorder [Unknown]
  - Food allergy [Unknown]
  - Drug dependence [Unknown]
